FAERS Safety Report 11104501 (Version 6)
Quarter: 2018Q1

REPORT INFORMATION
  Report Type: Report from Study
  Country: CA (occurrence: CA)
  Receive Date: 20150511
  Receipt Date: 20180302
  Transmission Date: 20180508
  Serious: Yes (Other)
  Sender: FDA-Public Use
  Company Number: PHHY2015CA052322

PATIENT
  Age: 76 Year
  Sex: Female

DRUGS (4)
  1. RIVAROXABAN [Concomitant]
     Active Substance: RIVAROXABAN
     Indication: PRODUCT USED FOR UNKNOWN INDICATION
     Route: 048
  2. SANDOSTATIN [Suspect]
     Active Substance: OCTREOTIDE ACETATE
     Indication: METASTATIC CARCINOID TUMOUR
     Dosage: UNK
     Route: 058
     Dates: start: 2005, end: 2005
  3. SINTROM [Concomitant]
     Active Substance: ACENOCOUMAROL
     Indication: PRODUCT USED FOR UNKNOWN INDICATION
     Dosage: 2 MG, UNK
     Route: 065
  4. SANDOSTATIN LAR DEPOT [Suspect]
     Active Substance: OCTREOTIDE ACETATE
     Indication: METASTATIC CARCINOID TUMOUR
     Dosage: 20 MG, QMO (EVERY 4 WEEKS)
     Route: 030
     Dates: start: 20030204

REACTIONS (14)
  - Abdominal discomfort [Unknown]
  - Blood pressure fluctuation [Unknown]
  - Blood pressure systolic increased [Unknown]
  - Intestinal mass [Unknown]
  - Malaise [Unknown]
  - Vaginal haemorrhage [Recovering/Resolving]
  - Sinus disorder [Unknown]
  - Diplopia [Unknown]
  - Needle issue [Unknown]
  - Asthenia [Unknown]
  - Cerebrovascular accident [Unknown]
  - Brain neoplasm [Unknown]
  - Diabetes mellitus [Unknown]
  - Contusion [Unknown]

NARRATIVE: CASE EVENT DATE: 20170714
